FAERS Safety Report 24410121 (Version 2)
Quarter: 2024Q4

REPORT INFORMATION
  Report Type: Spontaneous
  Country: BR (occurrence: BR)
  Receive Date: 20241008
  Receipt Date: 20241022
  Transmission Date: 20250115
  Serious: Yes (Hospitalization)
  Sender: ROCHE
  Company Number: BR-ROCHE-10000100389

PATIENT
  Age: 96 Year
  Sex: Female
  Weight: 50 kg

DRUGS (1)
  1. ALECENSA [Suspect]
     Active Substance: ALECTINIB HYDROCHLORIDE
     Indication: Product used for unknown indication
     Route: 050

REACTIONS (2)
  - Urinary tract infection [Recovered/Resolved]
  - Seizure [Recovered/Resolved]
